FAERS Safety Report 16563831 (Version 1)
Quarter: 2019Q3

REPORT INFORMATION
  Report Type: Report from Study
  Country: BE (occurrence: BE)
  Receive Date: 20190712
  Receipt Date: 20190712
  Transmission Date: 20191004
  Serious: Yes (Death, Other)
  Sender: FDA-Public Use
  Company Number: BE-ROCHE-2350038

PATIENT

DRUGS (2)
  1. ALTEPLASE. [Suspect]
     Active Substance: ALTEPLASE
     Indication: MYOCARDIAL INFARCTION
     Route: 042
  2. STAPHYLOKINASE [Concomitant]

REACTIONS (9)
  - Atrial fibrillation [Unknown]
  - Rhythm idioventricular [Unknown]
  - Ventricular fibrillation [Unknown]
  - Bradycardia [Unknown]
  - Ischaemic stroke [Fatal]
  - Cardiac arrest [Unknown]
  - Shock [Unknown]
  - Cardiac failure congestive [Unknown]
  - Acute kidney injury [Unknown]
